FAERS Safety Report 6143540-X (Version None)
Quarter: 2009Q2

REPORT INFORMATION
  Report Type: 
  Country: None (occurrence: None)
  Receive Date: 20090403
  Receipt Date: 20090331
  Transmission Date: 20091009
  Serious: Yes (Life-Threatening, Hospitalization)
  Sender: FDA-Public Use
  Company Number: DE-TEVA-190051ISR

PATIENT
  Sex: Female
  Weight: 57 kg

DRUGS (4)
  1. PACLITAXEL [Suspect]
     Indication: BRONCHIAL CARCINOMA
     Route: 042
     Dates: start: 20090226, end: 20090323
  2. PACLITAXEL [Concomitant]
  3. CARBOPLATIN [Suspect]
     Indication: BRONCHIAL CARCINOMA
     Route: 042
     Dates: start: 20090226, end: 20090323
  4. BEVACIZUMAB [Suspect]
     Indication: BRONCHIAL CARCINOMA
     Route: 042
     Dates: start: 20090226, end: 20090323

REACTIONS (3)
  - ENCEPHALOPATHY [None]
  - HYPERTENSIVE CRISIS [None]
  - SOMNOLENCE [None]
